FAERS Safety Report 10080704 (Version 2)
Quarter: 2014Q2

REPORT INFORMATION
  Report Type: Spontaneous
  Country: DE (occurrence: None)
  Receive Date: 20140414
  Receipt Date: 20140429
  Transmission Date: 20141212
  Serious: Yes (Hospitalization, Other)
  Sender: FDA-Public Use
  Company Number: AUR-APL-2014-04220

PATIENT
  Age: 66 Year
  Sex: Male
  Weight: 97 kg

DRUGS (3)
  1. CLOPIDOGREL [Suspect]
     Indication: STENT PLACEMENT
     Dates: start: 201311, end: 2014
  2. ELIQUIS [Suspect]
     Indication: CEREBROVASCULAR ACCIDENT PROPHYLAXIS
     Dosage: 10 MG (5 MG, 2 IN 1 D)
     Dates: start: 201311
  3. ELIQUIS [Suspect]
     Indication: ATRIAL FIBRILLATION
     Dosage: 10 MG (5 MG, 2 IN 1 D)
     Dates: start: 201311

REACTIONS (8)
  - Haemoptysis [None]
  - Oral disorder [None]
  - Gastrointestinal haemorrhage [None]
  - Haemoglobin decreased [None]
  - Haematocrit decreased [None]
  - Blood creatinine increased [None]
  - Gastrooesophageal reflux disease [None]
  - Duodenal ulcer [None]
